FAERS Safety Report 11362924 (Version 1)
Quarter: 2015Q3

REPORT INFORMATION
  Report Type: Spontaneous
  Country: US (occurrence: None)
  Receive Date: 20150807
  Receipt Date: 20150807
  Transmission Date: 20151125
  Serious: Yes (Hospitalization)
  Sender: FDA-Public Use
  Company Number: US-H14001-15-01157

PATIENT
  Age: 61 Year
  Sex: Male

DRUGS (4)
  1. ACETAMINOPHEN (PARACETAMOL) (UNKNOWN) (PARACETAMOL) [Suspect]
     Active Substance: ACETAMINOPHEN
     Indication: ABDOMINAL DISCOMFORT
     Dosage: 1 TABLESPOON EVERY TWO HOURS
     Route: 048
  2. BISMUTH SUBSALICYLATE (BISMUTH SUBSALICYLATE) (UNKNOWN) [Suspect]
     Active Substance: BISMUTH SUBSALICYLATE
     Indication: ABDOMINAL DISCOMFORT
     Dosage: 1 TABLESPOON EVERY TWO HOURS
     Route: 048
  3. DONNATAL [Suspect]
     Active Substance: ATROPINE SULFATE\HYOSCYAMINE SULFATE\PHENOBARBITAL\SCOPOLAMINE HYDROBROMIDE
     Indication: ABDOMINAL DISCOMFORT
     Dosage: 1 TABLESPOON EVERY TWO HOURS
     Route: 048
  4. LOPERAMIDE (LOPERAMIDE) [Suspect]
     Active Substance: LOPERAMIDE
     Indication: ABDOMINAL DISCOMFORT
     Dosage: 1 TABLESPOON EVERY TWO HOURS
     Route: 048

REACTIONS (1)
  - Coronary artery disease [None]

NARRATIVE: CASE EVENT DATE: 201203
